FAERS Safety Report 9769660 (Version 1)
Quarter: 2013Q4

REPORT INFORMATION
  Report Type: Spontaneous
  Country: US (occurrence: US)
  Receive Date: 20131218
  Receipt Date: 20131218
  Transmission Date: 20140711
  Serious: No
  Sender: FDA-Public Use
  Company Number: US-VERTEX PHARMACEUTICALS INC-AE-2011-000337

PATIENT
  Age: 49 Year
  Sex: Male

DRUGS (4)
  1. INCIVEK [Suspect]
     Indication: HEPATITIS C
     Dates: start: 201106
  2. RIBAVIRIN [Concomitant]
     Indication: HEPATITIS C
     Dates: start: 201106
  3. PEGINTERFERON ALFA [Concomitant]
     Indication: HEPATITIS C
     Dates: start: 201106
  4. IRON SUPPLEMENT [Concomitant]
     Indication: ANAEMIA
     Dates: start: 201106

REACTIONS (1)
  - Abdominal pain upper [Recovered/Resolved]
